FAERS Safety Report 5473604-5 (Version None)
Quarter: 2007Q4

REPORT INFORMATION
  Report Type: 
  Country: None (occurrence: None)
  Receive Date: 20071001
  Receipt Date: 20070921
  Transmission Date: 20080405
  Serious: Yes (Other)
  Sender: FDA-Public Use
  Company Number: GB-BAUSCH-2007BL003475

PATIENT
  Age: 9 Year
  Weight: 23 kg

DRUGS (2)
  1. GENTAMICIN SULFATE [Suspect]
     Indication: ANTI-INFECTIVE THERAPY
  2. CEFUROXIME [Suspect]
     Indication: ANTI-INFECTIVE THERAPY

REACTIONS (2)
  - RENAL FAILURE ACUTE [None]
  - RENAL TUBULAR NECROSIS [None]
